FAERS Safety Report 15059033 (Version 1)
Quarter: 2018Q2

REPORT INFORMATION
  Report Type: Spontaneous
  Country: US (occurrence: US)
  Receive Date: 20180625
  Receipt Date: 20180625
  Transmission Date: 20180711
  Serious: No
  Sender: FDA-Public Use
  Company Number: US-MYLANLABS-2018M1037935

PATIENT
  Sex: Female

DRUGS (1)
  1. EXEMESTANE TABLETS [Suspect]
     Active Substance: EXEMESTANE
     Indication: AROMATASE INHIBITION THERAPY
     Dosage: UNK
     Route: 048
     Dates: start: 201709

REACTIONS (3)
  - Arthralgia [Not Recovered/Not Resolved]
  - Fatigue [Not Recovered/Not Resolved]
  - Product appearance confusion [Unknown]
